FAERS Safety Report 8552941-1 (Version None)
Quarter: 2012Q3

REPORT INFORMATION
  Report Type: 
  Country: None (occurrence: None)
  Receive Date: 20120731
  Receipt Date: 20120727
  Transmission Date: 20120928
  Serious: Yes (Other)
  Sender: FDA-Public Use
  Company Number: PHHY2012JP055869

PATIENT
  Age: 67 Year
  Sex: Female

DRUGS (1)
  1. ZOMETA [Suspect]
     Indication: HYPERCALCAEMIA
     Dosage: UNK UKN, UNK
     Route: 041
     Dates: start: 20100701

REACTIONS (8)
  - CHEILITIS [None]
  - DYSLALIA [None]
  - WOUND COMPLICATION [None]
  - ORAL HERPES [None]
  - OSTEONECROSIS OF JAW [None]
  - TOOTH LOSS [None]
  - DYSARTHRIA [None]
  - ORAL CANDIDIASIS [None]
